FAERS Safety Report 18726754 (Version 5)
Quarter: 2025Q1

REPORT INFORMATION
  Report Type: Spontaneous
  Country: US (occurrence: US)
  Receive Date: 20210111
  Receipt Date: 20250303
  Transmission Date: 20250409
  Serious: No
  Sender: PFIZER
  Company Number: US-PFIZER INC-2021013176

PATIENT
  Age: 69 Year
  Sex: Female

DRUGS (9)
  1. METHOTREXATE SODIUM [Suspect]
     Active Substance: METHOTREXATE SODIUM
  2. ENBREL [Suspect]
     Active Substance: ETANERCEPT
  3. ATROVENT [Concomitant]
     Active Substance: IPRATROPIUM BROMIDE
  4. CYANOCOBALAMIN [Concomitant]
     Active Substance: CYANOCOBALAMIN
  5. DICLOFENAC [Concomitant]
     Active Substance: DICLOFENAC
  6. LISINOPRIL [Concomitant]
     Active Substance: LISINOPRIL
  7. ORPHENADRINE [Concomitant]
     Active Substance: ORPHENADRINE
  8. PANTOPRAZOLE [Concomitant]
     Active Substance: PANTOPRAZOLE
  9. PREDNISONE [Concomitant]
     Active Substance: PREDNISONE

REACTIONS (2)
  - Drug hypersensitivity [Unknown]
  - Rash [Unknown]
